FAERS Safety Report 15824390 (Version 1)
Quarter: 2019Q1

REPORT INFORMATION
  Report Type: Spontaneous
  Country: US (occurrence: US)
  Receive Date: 20190115
  Receipt Date: 20190115
  Transmission Date: 20190417
  Serious: No
  Sender: FDA-Public Use
  Company Number: US-MELINTA THERAPEUTICS, INC.-MTP201812-000108

PATIENT
  Sex: Female

DRUGS (1)
  1. BAXDELA [Suspect]
     Active Substance: DELAFLOXACIN MEGLUMINE
     Indication: WOUND INFECTION
     Dosage: UNKNOWN
     Route: 048
     Dates: start: 20181119, end: 20181125

REACTIONS (3)
  - Malaise [Unknown]
  - Hypersensitivity [Unknown]
  - Toothache [Unknown]
